FAERS Safety Report 10722645 (Version 1)
Quarter: 2015Q1

REPORT INFORMATION
  Report Type: Report from Study
  Country: US (occurrence: US)
  Receive Date: 20150120
  Receipt Date: 20150120
  Transmission Date: 20150721
  Serious: Yes (Other)
  Sender: FDA-Public Use
  Company Number: US-AMGEN INC.-USASL2015003927

PATIENT
  Age: 55 Year
  Sex: Female

DRUGS (1)
  1. ENBREL [Suspect]
     Active Substance: ETANERCEPT
     Indication: ANKYLOSING SPONDYLITIS
     Dosage: UNK
     Route: 065
     Dates: start: 20120530, end: 201410

REACTIONS (3)
  - Back pain [Unknown]
  - Ankylosing spondylitis [Unknown]
  - Pain in extremity [Unknown]

NARRATIVE: CASE EVENT DATE: 201410
